FAERS Safety Report 14107743 (Version 3)
Quarter: 2017Q4

REPORT INFORMATION
  Report Type: Report from Study
  Country: NL (occurrence: NL)
  Receive Date: 20171019
  Receipt Date: 20171114
  Transmission Date: 20180321
  Serious: Yes (Hospitalization, Other)
  Sender: FDA-Public Use
  Company Number: NL-ASTRAZENECA-2017SF03912

PATIENT
  Age: 68 Year
  Sex: Male
  Weight: 56.6 kg

DRUGS (12)
  1. OLAPARIB. [Suspect]
     Active Substance: OLAPARIB
     Indication: GASTRIC CANCER
     Route: 048
     Dates: start: 20170608, end: 20170704
  2. OLAPARIB. [Suspect]
     Active Substance: OLAPARIB
     Indication: GASTRIC CANCER
     Route: 048
     Dates: start: 20170705, end: 20170803
  3. OLAPARIB. [Suspect]
     Active Substance: OLAPARIB
     Indication: GASTRIC CANCER
     Route: 048
     Dates: start: 20170511, end: 20170523
  4. OLAPARIB. [Suspect]
     Active Substance: OLAPARIB
     Indication: GASTRIC CANCER
     Route: 048
     Dates: start: 20170524, end: 20170607
  5. FLORADIX [Concomitant]
     Active Substance: IRON
     Indication: ANAEMIA
     Route: 048
     Dates: start: 20170525
  6. MEDI4736 [Suspect]
     Active Substance: DURVALUMAB
     Indication: GASTRIC CANCER
     Route: 042
     Dates: start: 20170803, end: 20170803
  7. OLAPARIB. [Suspect]
     Active Substance: OLAPARIB
     Indication: GASTRIC CANCER
     Route: 048
     Dates: start: 20170901, end: 20170929
  8. BETAMETHASONE. [Concomitant]
     Active Substance: BETAMETHASONE
     Indication: DERMATOSIS
     Dosage: 0.5 MG/G FIRST WEEK: 2 TIMES A DAY SECOND WEEK: ONCE A DAY THIRD WEEK AND BEYOND BASED ON COMPLAI...
     Route: 003
     Dates: start: 20170804
  9. OLAPARIB. [Suspect]
     Active Substance: OLAPARIB
     Indication: GASTRIC CANCER
     Route: 048
     Dates: start: 20170804, end: 20170831
  10. MEDI4736 [Suspect]
     Active Substance: DURVALUMAB
     Indication: GASTRIC CANCER
     Route: 042
     Dates: start: 20170608, end: 20170608
  11. MEDI4736 [Suspect]
     Active Substance: DURVALUMAB
     Indication: GASTRIC CANCER
     Route: 042
     Dates: start: 20170705, end: 20170705
  12. MEDI4736 [Suspect]
     Active Substance: DURVALUMAB
     Indication: GASTRIC CANCER
     Route: 042
     Dates: start: 20170831, end: 20170831

REACTIONS (1)
  - Pancreatitis [Recovering/Resolving]

NARRATIVE: CASE EVENT DATE: 20171004
